FAERS Safety Report 11739223 (Version 1)
Quarter: 2015Q4

REPORT INFORMATION
  Report Type: Spontaneous
  Country: US (occurrence: US)
  Receive Date: 20151113
  Receipt Date: 20151113
  Transmission Date: 20160304
  Serious: No
  Sender: FDA-Public Use
  Company Number: US-ROCHE-1416727

PATIENT
  Age: 64 Year
  Sex: Female

DRUGS (4)
  1. KADCYLA [Suspect]
     Active Substance: ADO-TRASTUZUMAB EMTANSINE
     Indication: BREAST CANCER METASTATIC
     Route: 042
     Dates: start: 201401
  2. FUROSEMIDE. [Concomitant]
     Active Substance: FUROSEMIDE
     Indication: EJECTION FRACTION DECREASED
  3. CARVEDILOL. [Concomitant]
     Active Substance: CARVEDILOL
     Route: 065
  4. LISINOPRIL. [Concomitant]
     Active Substance: LISINOPRIL
     Indication: EJECTION FRACTION DECREASED

REACTIONS (2)
  - Neutropenia [Not Recovered/Not Resolved]
  - Ejection fraction decreased [Not Recovered/Not Resolved]
